FAERS Safety Report 8539993-X (Version None)
Quarter: 2012Q3

REPORT INFORMATION
  Report Type: 
  Country: None (occurrence: None)
  Receive Date: 20120726
  Receipt Date: 20120724
  Transmission Date: 20120928
  Serious: Yes (Hospitalization)
  Sender: FDA-Public Use
  Company Number: DK-TEVA-335025ISR

PATIENT
  Sex: Female

DRUGS (2)
  1. FLUCONAZOLE [Suspect]
     Indication: SKIN CANDIDA
     Route: 048
     Dates: start: 20120410, end: 20120418
  2. ROXITHROMYCIN [Concomitant]
     Indication: BACTERIAL INFECTION
     Dates: start: 20120415, end: 20120418

REACTIONS (1)
  - MOUTH ULCERATION [None]
